FAERS Safety Report 7574894-5 (Version None)
Quarter: 2011Q2

REPORT INFORMATION
  Report Type: 
  Country: None (occurrence: None)
  Receive Date: 20110627
  Receipt Date: 20110103
  Transmission Date: 20111010
  Serious: Yes (Hospitalization)
  Sender: FDA-Public Use
  Company Number: US-BAYER-201012009NA

PATIENT
  Age: 13 Year
  Sex: Female
  Weight: 61.224 kg

DRUGS (22)
  1. ZYRTEC [Concomitant]
     Dosage: APPROXIMATELY 4 YEARS
     Route: 065
  2. SINGULAIR [Concomitant]
     Dosage: APPROXIMATELY 4 YEARS
     Route: 065
  3. ZONEGRAN [Concomitant]
     Dosage: 3 MONTHS
     Route: 065
  4. GEODON [Concomitant]
     Dosage: APPROXIMATELY 6 YEARS
     Route: 065
  5. YAZ [Suspect]
     Indication: PREMENSTRUAL SYNDROME
     Dosage: 1 DF (DAILY DOSE), QD, ORAL
     Route: 048
     Dates: start: 20060911, end: 20081201
  6. ALBUTEROL SULFATE AUTOHALER [Concomitant]
     Dosage: 7 TO 8 YEARS
     Route: 065
  7. LONOX [Concomitant]
     Dosage: DAILY DOSE 2.5 MG
     Route: 065
     Dates: start: 20070905
  8. LOMOTIL [Concomitant]
  9. PHENERGAN HCL [Concomitant]
     Indication: PAIN
     Route: 065
  10. TRAMADOL HCL [Concomitant]
     Indication: PAIN
     Route: 065
  11. LAMICTAL [Concomitant]
     Dosage: 1 YEAR
     Route: 065
  12. DOXYCYCLINE [Concomitant]
     Indication: PAIN
     Route: 065
     Dates: start: 20070905
  13. OMNICEF [Concomitant]
  14. YAZ [Suspect]
     Indication: DYSMENORRHOEA
  15. PRISTIQ [Concomitant]
     Dosage: APPROXIMATELY 1.5 YEARS
     Route: 065
  16. SEROQUEL [Concomitant]
     Dosage: APPROXIMATELY 3 YEARS
     Route: 065
  17. ABILIFY [Concomitant]
     Dosage: APPROXIMATELY 6 YEARS
     Route: 065
  18. MAXALT [Concomitant]
     Dosage: DAILY DOSE 10 MG
     Route: 065
     Dates: start: 20070904
  19. YASMIN [Suspect]
     Indication: PREMENSTRUAL SYNDROME
     Dosage: 1 DF (DAILY DOSE), QD, ORAL
     Route: 048
     Dates: start: 20071116
  20. PROZAC [Concomitant]
     Indication: PAIN
     Dosage: 20 MG, UNK
  21. YAZ [Suspect]
     Indication: MENSTRUATION IRREGULAR
  22. RISPERDAL [Concomitant]
     Indication: PAIN
     Dosage: 1 MG, UNK

REACTIONS (2)
  - CHOLECYSTITIS [None]
  - DEPRESSION [None]
